FAERS Safety Report 8301252-8 (Version None)
Quarter: 2012Q2

REPORT INFORMATION
  Report Type: 
  Country: None (occurrence: None)
  Receive Date: 20120420
  Receipt Date: 20120420
  Transmission Date: 20120825
  Serious: No
  Sender: FDA-Public Use
  Company Number: None

PATIENT
  Age: 62 Year
  Sex: Female
  Weight: 71.667 kg

DRUGS (1)
  1. PREDNISONE [Suspect]
     Indication: COUGH
     Dosage: 38
     Route: 048
     Dates: start: 20120418, end: 20120430

REACTIONS (1)
  - BLOOD GLUCOSE INCREASED [None]
